FAERS Safety Report 14419490 (Version 2)
Quarter: 2018Q1

REPORT INFORMATION
  Report Type: Spontaneous
  Country: GB (occurrence: GB)
  Receive Date: 20180122
  Receipt Date: 20180212
  Transmission Date: 20180509
  Serious: Yes (Other)
  Sender: FDA-Public Use
  Company Number: GB-MYLANLABS-2018M1005593

PATIENT
  Age: 56 Year
  Sex: Male

DRUGS (3)
  1. CLOZARIL [Suspect]
     Active Substance: CLOZAPINE
     Indication: SCHIZOPHRENIA
     Dosage: UNK
     Route: 048
     Dates: start: 20160518
  2. CLOZARIL [Suspect]
     Active Substance: CLOZAPINE
     Dosage: 500 MG, QD
     Route: 048
     Dates: start: 201801, end: 201801
  3. CLOZARIL [Suspect]
     Active Substance: CLOZAPINE
     Dosage: 700 MG, QD
     Route: 048

REACTIONS (2)
  - Seizure [Not Recovered/Not Resolved]
  - Antipsychotic drug level decreased [Unknown]

NARRATIVE: CASE EVENT DATE: 201801
